FAERS Safety Report 5577867-7 (Version None)
Quarter: 2007Q4

REPORT INFORMATION
  Report Type: 
  Country: None (occurrence: None)
  Receive Date: 20071130
  Receipt Date: 20070627
  Transmission Date: 20080405
  Serious: No
  Sender: FDA-Public Use
  Company Number: US200707000652

PATIENT
  Age: 68 Year
  Sex: Male

DRUGS (2)
  1. BYETTA [Suspect]
     Indication: TYPE 2 DIABETES MELLITUS
     Dosage: 10 UG, 2/D SUBCUTANEOUS
     Route: 058
     Dates: start: 20070101
  2. INSULIN [Concomitant]

REACTIONS (2)
  - HYPERHIDROSIS [None]
  - INJECTION SITE PAIN [None]
